FAERS Safety Report 12905174 (Version 2)
Quarter: 2016Q4

REPORT INFORMATION
  Report Type: Spontaneous
  Country: JP (occurrence: JP)
  Receive Date: 20161102
  Receipt Date: 20161116
  Transmission Date: 20170207
  Serious: Yes (Other)
  Sender: FDA-Public Use
  Company Number: JP-009507513-1610JPN016480

PATIENT
  Age: 46 Year
  Sex: Female
  Weight: 56 kg

DRUGS (5)
  1. ULTIVA [Suspect]
     Active Substance: REMIFENTANIL HYDROCHLORIDE
     Indication: INDUCTION OF ANAESTHESIA
     Dosage: 0.2 MICRO-G/KG/MIN
     Route: 042
  2. ULTIVA [Suspect]
     Active Substance: REMIFENTANIL HYDROCHLORIDE
     Indication: MAINTENANCE OF ANAESTHESIA
     Dosage: 0.1-0.4 MICRO-G/KG/MIN
     Route: 042
  3. PROPOFOL. [Suspect]
     Active Substance: PROPOFOL
     Indication: INDUCTION OF ANAESTHESIA
     Dosage: 3 MICRO-G/ML, TARGET-CONTROLLED INFUSION
     Route: 042
  4. ESLAX INTRAVENOUS 25MG/2.5ML [Suspect]
     Active Substance: ROCURONIUM BROMIDE
     Indication: NEUROMUSCULAR BLOCKING THERAPY
     Dosage: 40 MG, QD
     Route: 042
  5. PROPOFOL. [Suspect]
     Active Substance: PROPOFOL
     Indication: MAINTENANCE OF ANAESTHESIA
     Dosage: 2.3-2.6 MICRO-G/ML, TARGET-CONTROLLED INFUSION
     Route: 042

REACTIONS (1)
  - Hypoglossal nerve paralysis [Recovering/Resolving]
